FAERS Safety Report 21411827 (Version 1)
Quarter: 2022Q4

REPORT INFORMATION
  Report Type: Spontaneous
  Country: US (occurrence: None)
  Receive Date: 20221005
  Receipt Date: 20221005
  Transmission Date: 20230113
  Serious: Yes (Hospitalization)
  Sender: FDA-Public Use
  Company Number: None

PATIENT
  Age: 74 Year
  Sex: Male
  Weight: 104.33 kg

DRUGS (12)
  1. EFFEXOR XR [Suspect]
     Active Substance: VENLAFAXINE HYDROCHLORIDE
     Indication: Drug therapy
     Dosage: FREQUENCY : ONCE;?
     Route: 048
     Dates: start: 20220810, end: 20220819
  2. TRESIBA [Concomitant]
     Active Substance: INSULIN DEGLUDEC
  3. LEVETIRACETAM [Concomitant]
     Active Substance: LEVETIRACETAM
  4. ATORVASTATIN [Concomitant]
     Active Substance: ATORVASTATIN
  5. CELEBREX [Concomitant]
     Active Substance: CELECOXIB
  6. METOPROLOL [Concomitant]
     Active Substance: METOPROLOL
  7. FAMOTIDINE [Concomitant]
     Active Substance: FAMOTIDINE
  8. DOCUSTAE SODIUM [Concomitant]
  9. CLOPIDOGREL [Concomitant]
     Active Substance: CLOPIDOGREL BISULFATE
  10. VITAMIN B12 [Concomitant]
     Active Substance: CYANOCOBALAMIN
  11. VITAMINS [Concomitant]
     Active Substance: VITAMINS
  12. FISH OIL [Concomitant]
     Active Substance: FISH OIL

REACTIONS (8)
  - Confusional state [None]
  - Hallucination [None]
  - Anger [None]
  - Agitation [None]
  - Insomnia [None]
  - Speech disorder [None]
  - Restlessness [None]
  - Seizure [None]

NARRATIVE: CASE EVENT DATE: 20220812
